FAERS Safety Report 21216795 (Version 1)
Quarter: 2022Q3

REPORT INFORMATION
  Report Type: Spontaneous
  Country: US (occurrence: None)
  Receive Date: 20220816
  Receipt Date: 20220816
  Transmission Date: 20221027
  Serious: No
  Sender: FDA-Public Use
  Company Number: US-ROCHE-2992835

PATIENT
  Age: 62 Year
  Sex: Female
  Weight: 74.910 kg

DRUGS (1)
  1. ALECENSA [Suspect]
     Active Substance: ALECTINIB HYDROCHLORIDE
     Indication: Lung carcinoma cell type unspecified stage IV
     Dosage: FOUR 150 MG CAPSULES TWICE DAILY
     Route: 065
     Dates: start: 20211105

REACTIONS (5)
  - Swelling [Recovering/Resolving]
  - Fatigue [Unknown]
  - Constipation [Recovered/Resolved]
  - Incontinence [Recovered/Resolved]
  - Weight increased [Unknown]

NARRATIVE: CASE EVENT DATE: 20211105
